FAERS Safety Report 14820530 (Version 1)
Quarter: 2018Q2

REPORT INFORMATION
  Report Type: Spontaneous
  Country: US (occurrence: US)
  Receive Date: 20180427
  Receipt Date: 20180427
  Transmission Date: 20180711
  Serious: Yes (Other)
  Sender: FDA-Public Use
  Company Number: US-BAYER-2018-077533

PATIENT
  Age: 27 Year
  Sex: Female

DRUGS (4)
  1. ACETYLSALICYLIC ACID({=100 MG) [Suspect]
     Active Substance: ASPIRIN
     Dosage: 81 MG, QD
  2. FOLIC ACID. [Concomitant]
     Active Substance: FOLIC ACID
  3. HEPARIN [Concomitant]
     Active Substance: HEPARIN SODIUM
  4. ENOXAPARIN [Concomitant]
     Active Substance: ENOXAPARIN

REACTIONS (5)
  - Caesarean section [None]
  - Product use in unapproved indication [None]
  - Premature delivery [None]
  - Exposure during pregnancy [None]
  - Off label use [None]
